FAERS Safety Report 9127473 (Version 1)
Quarter: 2013Q1

REPORT INFORMATION
  Report Type: Spontaneous
  Country: US (occurrence: US)
  Receive Date: 20130228
  Receipt Date: 20130228
  Transmission Date: 20140127
  Serious: No
  Sender: FDA-Public Use
  Company Number: US-GLAXOSMITHKLINE-A0978421A

PATIENT
  Age: 40 Year
  Sex: Female

DRUGS (7)
  1. LAMICTAL [Suspect]
     Indication: EPILEPSY
     Dosage: 100MG TWICE PER DAY
     Route: 048
     Dates: start: 201106
  2. IMITREX [Concomitant]
  3. PROPRANOLOL [Concomitant]
  4. CLONAZEPAM [Concomitant]
  5. TOPOMAX [Concomitant]
  6. PROZAC [Concomitant]
  7. TRAZODONE [Concomitant]

REACTIONS (3)
  - Headache [Recovering/Resolving]
  - Headache [Unknown]
  - Therapeutic response decreased [Unknown]
